FAERS Safety Report 8588059-1 (Version None)
Quarter: 2012Q3

REPORT INFORMATION
  Report Type: 
  Country: None (occurrence: None)
  Receive Date: 20120813
  Receipt Date: 20120808
  Transmission Date: 20120928
  Serious: No
  Sender: FDA-Public Use
  Company Number: US-PFIZER INC-2012194263

PATIENT
  Sex: Male

DRUGS (2)
  1. ZOLOFT [Suspect]
     Dosage: UNK
  2. VIAGRA [Suspect]
     Dosage: UNK
     Route: 048

REACTIONS (2)
  - EJACULATION FAILURE [None]
  - SEXUAL DYSFUNCTION [None]
